FAERS Safety Report 7830418-6 (Version None)
Quarter: 2011Q4

REPORT INFORMATION
  Report Type: 
  Country: None (occurrence: None)
  Receive Date: 20111021
  Receipt Date: 20111010
  Transmission Date: 20120403
  Serious: Yes (Other)
  Sender: FDA-Public Use
  Company Number: FR-ACTELION-A-CH2011-55442

PATIENT
  Age: 42 Year
  Sex: Female

DRUGS (1)
  1. TRACLEER [Suspect]
     Indication: SKIN ULCER
     Dosage: 62.5 MG, BID
     Route: 048
     Dates: start: 20080201, end: 20110301

REACTIONS (6)
  - PREGNANCY [None]
  - PRE-ECLAMPSIA [None]
  - HYPERTENSION [None]
  - PREMATURE BABY [None]
  - ACUTE PULMONARY OEDEMA [None]
  - CAESAREAN SECTION [None]
